FAERS Safety Report 11732636 (Version 1)
Quarter: 2015Q4

REPORT INFORMATION
  Report Type: Spontaneous
  Country: US (occurrence: US)
  Receive Date: 20151110
  Receipt Date: 20151110
  Transmission Date: 20160304
  Serious: No
  Sender: FDA-Public Use
  Company Number: US-ELI_LILLY_AND_COMPANY-US201204003194

PATIENT
  Age: 57 Year
  Sex: Female

DRUGS (2)
  1. FORTEO [Suspect]
     Active Substance: TERIPARATIDE
     Indication: FRACTURE TREATMENT
     Dosage: 20 UG, QD
     Dates: start: 201203
  2. FORTEO [Suspect]
     Active Substance: TERIPARATIDE
     Dosage: 20 UG, QD
     Dates: end: 201204

REACTIONS (8)
  - Nausea [Unknown]
  - Off label use [Recovered/Resolved]
  - Malaise [Not Recovered/Not Resolved]
  - Contusion [Unknown]
  - Gastric disorder [Unknown]
  - Abdominal pain [Unknown]
  - Lethargy [Unknown]
  - Accident [Unknown]

NARRATIVE: CASE EVENT DATE: 201203
